FAERS Safety Report 12408650 (Version 2)
Quarter: 2016Q2

REPORT INFORMATION
  Report Type: Spontaneous
  Country: US (occurrence: US)
  Receive Date: 20160526
  Receipt Date: 20160601
  Transmission Date: 20160815
  Serious: Yes (Other)
  Sender: FDA-Public Use
  Company Number: US-MDT-ADR-2016-00953

PATIENT
  Age: 13 Year
  Sex: Male

DRUGS (1)
  1. LIORESAL [Suspect]
     Active Substance: BACLOFEN
     Dosage: 921MCG/ML
     Route: 037

REACTIONS (6)
  - Muscle spasms [Unknown]
  - Hypertension [Unknown]
  - Muscle tightness [Unknown]
  - Drug withdrawal syndrome [Unknown]
  - Muscle spasticity [Unknown]
  - Clonus [Unknown]

NARRATIVE: CASE EVENT DATE: 20160519
